FAERS Safety Report 10195869 (Version 2)
Quarter: 2014Q2

REPORT INFORMATION
  Report Type: Spontaneous
  Country: FR (occurrence: FR)
  Receive Date: 20140527
  Receipt Date: 20140625
  Transmission Date: 20141212
  Serious: Yes (Other)
  Sender: FDA-Public Use
  Company Number: FR-ORION CORPORATION ORION PHARMA-ENTC2014-0176

PATIENT
  Age: 73 Year
  Sex: Male

DRUGS (7)
  1. STALEVO [Suspect]
     Indication: PARKINSON^S DISEASE
     Route: 065
     Dates: end: 201403
  2. MODOPAR [Concomitant]
     Route: 065
  3. AZILECT [Concomitant]
     Route: 065
  4. SIFROL [Concomitant]
     Route: 065
  5. APROVEL [Concomitant]
     Route: 065
  6. CIALIS [Concomitant]
     Route: 065
  7. SERESTA [Concomitant]
     Route: 065

REACTIONS (3)
  - Pemphigoid [Not Recovered/Not Resolved]
  - Nausea [Unknown]
  - Pyrexia [Unknown]
